FAERS Safety Report 6126954-3 (Version None)
Quarter: 2009Q1

REPORT INFORMATION
  Report Type: 
  Country: None (occurrence: None)
  Receive Date: 20090320
  Receipt Date: 20081017
  Transmission Date: 20090719
  Serious: No
  Sender: FDA-Public Use
  Company Number: US-ABBOTT-08P-163-0482387-00

PATIENT
  Sex: Female
  Weight: 108.96 kg

DRUGS (1)
  1. ERYTHROMYCIN BASE [Suspect]
     Indication: DRUG USE FOR UNKNOWN INDICATION
     Dates: start: 19780101, end: 19780101

REACTIONS (3)
  - DIARRHOEA [None]
  - URTICARIA [None]
  - VOMITING [None]
